FAERS Safety Report 4305980-0 (Version None)
Quarter: 2004Q1

REPORT INFORMATION
  Report Type: 
  Country: None (occurrence: None)
  Receive Date: 20040225
  Receipt Date: 20040209
  Transmission Date: 20041129
  Serious: Yes (Hospitalization)
  Sender: FDA-Public Use
  Company Number: A03200400399

PATIENT
  Age: 73 Year
  Sex: Female
  Weight: 62.1428 kg

DRUGS (6)
  1. PLAVIX [Suspect]
     Indication: SURGERY
     Dosage: 75 MG QD - ORAL
     Route: 048
     Dates: start: 20030101
  2. METOPROLOL TARTRATE [Concomitant]
  3. HMG-COA REDUCTASE INHIBITOR [Concomitant]
  4. GLYCERYL TRINITRATE [Concomitant]
  5. FUROSEMIDE [Concomitant]
  6. ACETYLSALICYLIC ACID [Concomitant]

REACTIONS (2)
  - ALOPECIA [None]
  - CARDIAC ARREST [None]
